FAERS Safety Report 18328862 (Version 2)
Quarter: 2020Q4

REPORT INFORMATION
  Report Type: Report from Study
  Country: US (occurrence: US)
  Receive Date: 20200930
  Receipt Date: 20201121
  Transmission Date: 20210113
  Serious: Yes (Other)
  Sender: FDA-Public Use
  Company Number: NVSC2020US260109

PATIENT
  Age: 14 Year
  Sex: Female

DRUGS (2)
  1. ILARIS [Suspect]
     Active Substance: CANAKINUMAB
     Indication: STILL^S DISEASE
     Dosage: 200 MG, EVERY 3 WEEKS
     Route: 058
     Dates: start: 20191014
  2. ILARIS [Suspect]
     Active Substance: CANAKINUMAB
     Indication: PYREXIA
     Dosage: 200 MG, EVERY 3 WEEKS
     Route: 058
     Dates: start: 20170520

REACTIONS (6)
  - Ageusia [Unknown]
  - Inappropriate schedule of product administration [Unknown]
  - Anosmia [Unknown]
  - Product prescribing error [Unknown]
  - Pyrexia [Unknown]
  - COVID-19 [Unknown]

NARRATIVE: CASE EVENT DATE: 202009
